FAERS Safety Report 4980240-3 (Version None)
Quarter: 2006Q2

REPORT INFORMATION
  Report Type: 
  Country: None (occurrence: None)
  Receive Date: 20060424
  Receipt Date: 20060413
  Transmission Date: 20061013
  Serious: Yes (Other)
  Sender: FDA-Public Use
  Company Number: PHBS2006TW05709

PATIENT
  Age: 59 Year
  Sex: Female

DRUGS (1)
  1. GLEEVEC [Suspect]
     Indication: CHRONIC MYELOID LEUKAEMIA
     Dosage: 300 MG/D
     Route: 065
     Dates: start: 20040810

REACTIONS (2)
  - BLOOD GLUCOSE INCREASED [None]
  - VOMITING [None]
